FAERS Safety Report 21613334 (Version 2)
Quarter: 2023Q1

REPORT INFORMATION
  Report Type: Spontaneous
  Country: US (occurrence: US)
  Receive Date: 20221118
  Receipt Date: 20230106
  Transmission Date: 20230417
  Serious: No
  Sender: FDA-Public Use
  Company Number: US-GSK-US2022AMR167953

PATIENT
  Sex: Male

DRUGS (2)
  1. BETAMETHASONE [Suspect]
     Active Substance: BETAMETHASONE
     Indication: Product used for unknown indication
     Dosage: UNK
     Route: 048
  2. ACITRETIN [Suspect]
     Active Substance: ACITRETIN
     Indication: Granulomatous dermatitis
     Dosage: 25 MG
     Route: 048
     Dates: start: 20220716, end: 20221022

REACTIONS (1)
  - Drug ineffective [Not Recovered/Not Resolved]
